FAERS Safety Report 15053274 (Version 1)
Quarter: 2018Q2

REPORT INFORMATION
  Report Type: Spontaneous
  Country: IT (occurrence: IT)
  Receive Date: 20180622
  Receipt Date: 20180622
  Transmission Date: 20180711
  Serious: Yes (Other)
  Sender: FDA-Public Use
  Company Number: IT-MYLANLABS-2018M1042373

PATIENT
  Age: 62 Year
  Sex: Female

DRUGS (1)
  1. VORICONAZOLE. [Suspect]
     Active Substance: VORICONAZOLE
     Indication: PROPHYLAXIS
     Dosage: UNK

REACTIONS (5)
  - Aspergillus test positive [Unknown]
  - Interstitial lung disease [Unknown]
  - Pulmonary function test decreased [Recovering/Resolving]
  - Febrile neutropenia [Unknown]
  - Cough [Unknown]

NARRATIVE: CASE EVENT DATE: 20171204
